FAERS Safety Report 5394471-4 (Version None)
Quarter: 2007Q3

REPORT INFORMATION
  Report Type: 
  Country: None (occurrence: None)
  Receive Date: 20070723
  Receipt Date: 20070329
  Transmission Date: 20080115
  Serious: No
  Sender: FDA-Public Use
  Company Number: US-AMGEN-US217414

PATIENT
  Age: 87 Year
  Sex: Female

DRUGS (2)
  1. VECTIBIX [Suspect]
     Indication: COLORECTAL CANCER
     Route: 042
     Dates: start: 20070201
  2. ATENOLOL [Concomitant]

REACTIONS (6)
  - CARCINOEMBRYONIC ANTIGEN INCREASED [None]
  - DERMATITIS ACNEIFORM [None]
  - PAIN [None]
  - RASH PRURITIC [None]
  - SKIN HAEMORRHAGE [None]
  - THERAPEUTIC RESPONSE DECREASED [None]
